FAERS Safety Report 16936617 (Version 1)
Quarter: 2019Q4

REPORT INFORMATION
  Report Type: Report from Study
  Country: US (occurrence: US)
  Receive Date: 20191018
  Receipt Date: 20191018
  Transmission Date: 20200122
  Serious: Yes (Other)
  Sender: FDA-Public Use
  Company Number: US-BAYER-2019-182913

PATIENT
  Age: 67 Year
  Sex: Female

DRUGS (10)
  1. PIQRAY [Concomitant]
     Active Substance: ALPELISIB
     Dosage: UNK
  2. NORCO [Concomitant]
     Active Substance: ACETAMINOPHEN\HYDROCODONE BITARTRATE
     Dosage: UNK
  3. SYNDROS [Concomitant]
     Active Substance: DRONABINOL
     Dosage: UNK
  4. HYDROCORTISONE. [Concomitant]
     Active Substance: HYDROCORTISONE
     Dosage: UNK
  5. SENNOSIDE A+B [Concomitant]
     Active Substance: SENNOSIDES A AND B
     Dosage: UNK
  6. XANAX [Concomitant]
     Active Substance: ALPRAZOLAM
     Dosage: UNK
  7. STIVARGA [Suspect]
     Active Substance: REGORAFENIB
     Indication: COLON CANCER
     Dosage: 160 MG, QD (FOR 21 DAYS, THEN OFF FOR 7 DAYS)
     Route: 048
  8. MOTRIN [Concomitant]
     Active Substance: IBUPROFEN
     Dosage: UNK
  9. AKYNZEO [Concomitant]
     Active Substance: NETUPITANT\PALONOSETRON HYDROCHLORIDE
     Dosage: UNK
  10. BUPROPION. [Concomitant]
     Active Substance: BUPROPION
     Dosage: UNK

REACTIONS (5)
  - Fluid intake reduced [Recovering/Resolving]
  - Blister [Recovering/Resolving]
  - Rash erythematous [Recovering/Resolving]
  - Pyrexia [Unknown]
  - Oropharyngeal blistering [Recovering/Resolving]

NARRATIVE: CASE EVENT DATE: 20190929
